FAERS Safety Report 4779090-2 (Version None)
Quarter: 2005Q3

REPORT INFORMATION
  Report Type: 
  Country: None (occurrence: None)
  Receive Date: 20050923
  Receipt Date: 20050920
  Transmission Date: 20060218
  Serious: Yes (Congenital Anomaly)
  Sender: FDA-Public Use
  Company Number: THQ2005A00835

PATIENT

DRUGS (1)
  1. LANSOPRAZOLE [Suspect]
     Dosage: TRANSPLACENTAL (FIRST TRIMESTER)
     Route: 064

REACTIONS (2)
  - DRUG EXPOSURE DURING PREGNANCY [None]
  - HYPOPLASTIC LEFT HEART SYNDROME [None]
